FAERS Safety Report 17658782 (Version 2)
Quarter: 2020Q2

REPORT INFORMATION
  Report Type: Report from Study
  Country: IT (occurrence: IT)
  Receive Date: 20200413
  Receipt Date: 20200418
  Transmission Date: 20200713
  Serious: Yes (Other)
  Sender: FDA-Public Use
  Company Number: IT-AUROBINDO-AUR-APL-2020-017523

PATIENT
  Sex: Male

DRUGS (2)
  1. RIBAVIRIN CAPSULE [Suspect]
     Active Substance: RIBAVIRIN
     Indication: NEPHROPATHY
     Dosage: 400 MILLIGRAM, EVERY WEEK (200 MG X2/WEEK)
     Route: 065
  2. RIBAVIRIN CAPSULE [Suspect]
     Active Substance: RIBAVIRIN
     Indication: HEPATITIS C
     Dosage: UNK
     Route: 065

REACTIONS (1)
  - Haemolytic anaemia [Unknown]
